FAERS Safety Report 8487466 (Version 2)
Quarter: 2012Q4

REPORT INFORMATION
  Report Type: Report from Study
  Country: US (occurrence: US)
  Receive Date: 20120402
  Receipt Date: 20120918
  Transmission Date: 20130627
  Serious: Yes (Life-Threatening)
  Sender: FDA-Public Use
  Company Number: US-DX529-2012DX000076

PATIENT
  Age: 28 Year
  Sex: Female
  Weight: 148.33 kg

DRUGS (1)
  1. KALBITOR [Suspect]
     Indication: HEREDITARY ANGIOEDEMA
     Route: 058
     Dates: start: 20120320, end: 20120320

REACTIONS (6)
  - Anaphylactic reaction [Recovered/Resolved]
  - Muscle contractions involuntary [Recovered/Resolved]
  - Panic attack [Recovered/Resolved]
  - Drug ineffective [Unknown]
  - Hereditary angioedema [None]
  - Crying [None]
